FAERS Safety Report 8076636-6 (Version None)
Quarter: 2012Q1

REPORT INFORMATION
  Report Type: 
  Country: None (occurrence: None)
  Receive Date: 20120127
  Receipt Date: 20120123
  Transmission Date: 20120608
  Serious: Yes (Life-Threatening, Hospitalization)
  Sender: FDA-Public Use
  Company Number: PHHO2011US05317

PATIENT
  Sex: Male

DRUGS (11)
  1. METOPROLOL SUCCINATE [Suspect]
  2. SAXAGLIPTIN [Concomitant]
  3. BETA BLOCKING AGENTS [Concomitant]
  4. INSULIN GLARGINE [Concomitant]
  5. ALDOSTERONE [Concomitant]
  6. ANTICOAGULANTS [Concomitant]
  7. ANGIOTENSIN CONVERTING ENZYME BLOCKERS [Concomitant]
  8. DIURETICS [Concomitant]
  9. VERAPAMIL HYDROCHLORIDE [Suspect]
  10. DIOVAN [Suspect]
  11. LASIX [Suspect]

REACTIONS (5)
  - BRADYCARDIA [None]
  - HYPERKALAEMIA [None]
  - RENAL FAILURE ACUTE [None]
  - HYPOXIA [None]
  - ASTHENIA [None]
